FAERS Safety Report 17165349 (Version 1)
Quarter: 2019Q4

REPORT INFORMATION
  Report Type: Report from Study
  Country: CO (occurrence: CO)
  Receive Date: 20191217
  Receipt Date: 20191217
  Transmission Date: 20200122
  Serious: Yes (Death, Hospitalization, Other)
  Sender: FDA-Public Use
  Company Number: CO-JNJFOC-20171001825

PATIENT
  Age: 66 Year
  Sex: Male
  Weight: 74 kg

DRUGS (1)
  1. IMBRUVICA [Suspect]
     Active Substance: IBRUTINIB
     Indication: MANTLE CELL LYMPHOMA
     Route: 048
     Dates: start: 20170128

REACTIONS (5)
  - Lung disorder [Unknown]
  - Laboratory test abnormal [Unknown]
  - Myocardial infarction [Fatal]
  - Haemoglobin decreased [Unknown]
  - Gastritis [Unknown]

NARRATIVE: CASE EVENT DATE: 20170915
